FAERS Safety Report 8538006-3 (Version None)
Quarter: 2012Q3

REPORT INFORMATION
  Report Type: 
  Country: None (occurrence: None)
  Receive Date: 20120725
  Receipt Date: 20120719
  Transmission Date: 20120928
  Serious: No
  Sender: FDA-Public Use
  Company Number: US-PFIZER INC-2012165614

PATIENT
  Sex: Female
  Weight: 56.689 kg

DRUGS (8)
  1. ACCUPRIL [Suspect]
     Indication: HYPERTENSION
     Dosage: 10 MG, 1X/DAY
     Route: 048
     Dates: start: 20100201
  2. ZOLOFT [Suspect]
     Indication: HEADACHE
  3. ZOLOFT [Suspect]
     Indication: STRESS
     Dosage: 25 MG, 2X/DAY
     Route: 048
  4. ZOLOFT [Suspect]
     Indication: ABNORMAL BEHAVIOUR
  5. ZOLOFT [Suspect]
     Indication: AGGRESSION
  6. ALPRAZOLAM [Concomitant]
     Dosage: UNK
  7. ZOLOFT [Suspect]
     Indication: ANXIETY
  8. ZOLOFT [Suspect]
     Indication: DEPRESSION

REACTIONS (2)
  - OFF LABEL USE [None]
  - MEMORY IMPAIRMENT [None]
